FAERS Safety Report 8904934 (Version 1)
Quarter: 2012Q4

REPORT INFORMATION
  Report Type: 
  Country: US (occurrence: US)
  Receive Date: 20121113
  Receipt Date: 20121113
  Transmission Date: 20130627
  Serious: No
  Sender: FDA-Public Use
  Company Number: US-BIOGENIDEC-2012BI050670

PATIENT
  Age: 43 Year
  Sex: Male

DRUGS (1)
  1. TYSABRI [Suspect]
     Indication: MULTIPLE SCLEROSIS
     Route: 042
     Dates: start: 20120606

REACTIONS (5)
  - Musculoskeletal stiffness [Unknown]
  - Influenza like illness [Recovered/Resolved]
  - Cold sweat [Not Recovered/Not Resolved]
  - Vomiting [Recovered/Resolved]
  - Chills [Not Recovered/Not Resolved]
